FAERS Safety Report 10976930 (Version 5)
Quarter: 2015Q2

REPORT INFORMATION
  Report Type: Spontaneous
  Country: NO (occurrence: NO)
  Receive Date: 20150402
  Receipt Date: 20150504
  Transmission Date: 20150821
  Serious: Yes (Death, Hospitalization, Other)
  Sender: FDA-Public Use
  Company Number: NO-009507513-1503NOR011840

PATIENT
  Age: 45 Year
  Sex: Male
  Weight: 94 kg

DRUGS (22)
  1. YONDELIS [Suspect]
     Active Substance: TRABECTEDIN
     Indication: SYNOVIAL SARCOMA
     Dosage: DOSAGE FORM: LYOPHILIZED POWDER
     Route: 042
     Dates: start: 20150205, end: 20150206
  2. DEXAMETHASONE. [Concomitant]
     Active Substance: DEXAMETHASONE
     Route: 042
  3. DEXAMETHASONE. [Concomitant]
     Active Substance: DEXAMETHASONE
     Route: 042
  4. MEROPENEM. [Concomitant]
     Active Substance: MEROPENEM
     Indication: INFECTION
     Dosage: DOSAGE FORM: UNSPECIFIED
     Route: 040
     Dates: start: 20150218, end: 20150222
  5. AFIPRAN [Concomitant]
     Indication: NAUSEA
     Dosage: DOSAGE FORM: UNSPECIFIED
     Dates: start: 20150115
  6. APREPITANT. [Suspect]
     Active Substance: APREPITANT
     Indication: PRODUCT USED FOR UNKNOWN INDICATION
     Dosage: DOSAGE FORM: UNSPECIFIED, DAY  2 AND DAY 3 (OF SECOND TRABECTEDIN CYCLE), 80 MG, UNKNOWN
     Route: 065
  7. LAXOBERAL [Concomitant]
     Active Substance: SODIUM PICOSULFATE
     Indication: CONSTIPATION
     Dosage: 10 DF, UNK
     Route: 048
     Dates: start: 20150115
  8. LAXOBERAL [Concomitant]
     Active Substance: SODIUM PICOSULFATE
     Route: 048
  9. ESOMEPRAZOLE MAGNESIUM. [Suspect]
     Active Substance: ESOMEPRAZOLE MAGNESIUM
  10. DUPHALAC [Concomitant]
     Active Substance: LACTULOSE
     Indication: CONSTIPATION
     Dosage: DOSAGE FORM: UNSPECIFIED
     Route: 048
     Dates: start: 20150115
  11. OXYCONTIN [Concomitant]
     Active Substance: OXYCODONE HYDROCHLORIDE
     Indication: PAIN
     Route: 048
     Dates: start: 20150219, end: 20150222
  12. AZITHROMYCIN [Concomitant]
     Active Substance: AZITHROMYCIN ANHYDROUS
     Indication: INFECTION
     Dosage: DOSAGE FORM: UNSPECIFIED
     Route: 048
     Dates: start: 20150218, end: 20150222
  13. ONDANSETRON HYDROCHLORIDE. [Concomitant]
     Active Substance: ONDANSETRON HYDROCHLORIDE
     Indication: NAUSEA
     Dosage: DOSAGE FORM: UNSPECIFIED, 3 DAYS AFTER TRABECTEDIN INFUSION
     Route: 065
     Dates: start: 20150115
  14. NEULASTA [Concomitant]
     Active Substance: PEGFILGRASTIM
     Indication: NEUTROPENIA
     Route: 058
     Dates: start: 20150115
  15. LAXOBERAL [Concomitant]
     Active Substance: SODIUM PICOSULFATE
     Indication: CONSTIPATION
     Dosage: 10 DF, BID
     Route: 048
  16. ESOMEPRAZOLE MAGNESIUM. [Suspect]
     Active Substance: ESOMEPRAZOLE MAGNESIUM
     Indication: PRODUCT USED FOR UNKNOWN INDICATION
     Dosage: DOSAGE FORM: UNSPECIFIED
     Route: 065
  17. YONDELIS [Suspect]
     Active Substance: TRABECTEDIN
     Dosage: DOSAGE FORM: LYOPHILIZED POWDER
     Route: 042
     Dates: start: 20150115
  18. DEXAMETHASONE. [Concomitant]
     Active Substance: DEXAMETHASONE
     Indication: PREMEDICATION
     Dosage: 20 MG, UNK
     Route: 042
  19. FURIX [Concomitant]
     Active Substance: FUROSEMIDE
     Indication: ACUTE KIDNEY INJURY
     Dosage: DOSAGE FORM: UNSPECIFIED
     Route: 040
     Dates: start: 20150213, end: 20150222
  20. PEGFILGRASTIM [Concomitant]
     Active Substance: PEGFILGRASTIM
     Dosage: DOSAGE FORM: UNSPECIFIED, 24-48 HOURS AFTER TRABECTEDIN INFUSION
     Route: 065
  21. APREPITANT. [Suspect]
     Active Substance: APREPITANT
     Dosage: DOSAGE FORM: UNSPECIFIED, DAY 1 OF TRABECTEDIN CYCLE,125 MG, UNKNOWN
     Route: 065
     Dates: start: 20150115
  22. DEXAMETHASONE. [Concomitant]
     Active Substance: DEXAMETHASONE
     Route: 042

REACTIONS (7)
  - Hepatic enzyme increased [Not Recovered/Not Resolved]
  - Pulmonary congestion [Unknown]
  - Rhabdomyolysis [Fatal]
  - Lung infiltration [Unknown]
  - Cholecystitis [Unknown]
  - Acute kidney injury [Fatal]
  - Bone marrow failure [Not Recovered/Not Resolved]

NARRATIVE: CASE EVENT DATE: 201502
